FAERS Safety Report 14674201 (Version 1)
Quarter: 2018Q1

REPORT INFORMATION
  Report Type: Spontaneous
  Country: US (occurrence: US)
  Receive Date: 20180322
  Receipt Date: 20180322
  Transmission Date: 20180509
  Serious: Yes (Other)
  Sender: FDA-Public Use
  Company Number: None

PATIENT
  Age: 62 Year
  Sex: Male
  Weight: 83.25 kg

DRUGS (1)
  1. KIRKLAND SIGNATURE STOOL SOFTENER [Suspect]
     Active Substance: DOCUSATE SODIUM
     Indication: DIVERTICULUM
     Route: 048
     Dates: start: 20171101, end: 20180201

REACTIONS (9)
  - Throat irritation [None]
  - Cough [None]
  - Discomfort [None]
  - Sinus operation [None]
  - Throat clearing [None]
  - Choking sensation [None]
  - Sleep disorder [None]
  - Product coating issue [None]
  - Hypersensitivity [None]

NARRATIVE: CASE EVENT DATE: 20180126
